FAERS Safety Report 4934183-1 (Version None)
Quarter: 2006Q1

REPORT INFORMATION
  Report Type: 
  Country: None (occurrence: None)
  Receive Date: 20060303
  Receipt Date: 20060220
  Transmission Date: 20060701
  Serious: Yes (Death)
  Sender: FDA-Public Use
  Company Number: JP-2005-027017

PATIENT
  Age: 62 Year
  Sex: Male

DRUGS (3)
  1. BETAPACE [Suspect]
     Indication: ATRIAL FIBRILLATION
     Dosage: 40 MG, 2X/DAY, ORAL
     Route: 048
     Dates: start: 20040927, end: 20050214
  2. TAMBOCOR [Suspect]
     Dosage: ORAL
     Route: 048
     Dates: start: 20040929, end: 20050214
  3. WARFARIN SODIUM [Concomitant]

REACTIONS (1)
  - DEATH [None]
